FAERS Safety Report 19505824 (Version 1)
Quarter: 2021Q3

REPORT INFORMATION
  Report Type: Spontaneous
  Country: US (occurrence: US)
  Receive Date: 20210708
  Receipt Date: 20210708
  Transmission Date: 20211014
  Serious: Yes (Disabling)
  Sender: FDA-Public Use
  Company Number: None

PATIENT
  Sex: Male

DRUGS (1)
  1. ROGAINE [Suspect]
     Active Substance: MINOXIDIL

REACTIONS (9)
  - Headache [None]
  - Decreased appetite [None]
  - Adverse drug reaction [None]
  - Feeling cold [None]
  - Anxiety [None]
  - Emotional disorder [None]
  - Blood pressure decreased [None]
  - Nausea [None]
  - Loss of libido [None]

NARRATIVE: CASE EVENT DATE: 20200228
